FAERS Safety Report 7198122-8 (Version None)
Quarter: 2010Q4

REPORT INFORMATION
  Report Type: 
  Country: None (occurrence: None)
  Receive Date: 20101223
  Receipt Date: 20101223
  Transmission Date: 20110411
  Serious: Yes (Other)
  Sender: FDA-Public Use
  Company Number: None

PATIENT
  Age: 37 Year
  Sex: Female
  Weight: 69.4003 kg

DRUGS (2)
  1. PROPOXYPHENE HYDROCHLORIDE [Suspect]
     Indication: PAIN
     Dosage: 100 - 650 2 A DAY
     Dates: start: 20101004
  2. PROPOXYPHENE HYDROCHLORIDE [Suspect]
     Dosage: 100  650 2 TIMES A DAY
     Dates: start: 20100823

REACTIONS (2)
  - EXTRASYSTOLES [None]
  - PALPITATIONS [None]
